FAERS Safety Report 4826342-3 (Version None)
Quarter: 2005Q4

REPORT INFORMATION
  Report Type: 
  Country: None (occurrence: None)
  Receive Date: 20051111
  Receipt Date: 20050912
  Transmission Date: 20060501
  Serious: Yes (Other)
  Sender: FDA-Public Use
  Company Number: US-ROCHE-417712

PATIENT
  Age: 65 Year
  Sex: Male
  Weight: 72.6 kg

DRUGS (1)
  1. ACCUTANE [Suspect]
     Dosage: NO FREQUENCY REPORTED
     Route: 048
     Dates: start: 20050101, end: 20050830

REACTIONS (1)
  - GYNAECOMASTIA [None]
